FAERS Safety Report 14805617 (Version 2)
Quarter: 2018Q2

REPORT INFORMATION
  Report Type: Spontaneous
  Country: US (occurrence: US)
  Receive Date: 20180425
  Receipt Date: 20180518
  Transmission Date: 20180711
  Serious: No
  Sender: FDA-Public Use
  Company Number: US-PFIZER INC-2018170236

PATIENT
  Sex: Female

DRUGS (6)
  1. HUMIRA [Suspect]
     Active Substance: ADALIMUMAB
     Dosage: UNK (MORE THAN 10 YEARS)
  2. METHOTREXATE SODIUM. [Suspect]
     Active Substance: METHOTREXATE SODIUM
     Dosage: UNK (MORE THAN 10 YEARS)
  3. METHOTREXATE. [Suspect]
     Active Substance: METHOTREXATE
     Dosage: UNK (MORE THAN 10 YEARS)
     Route: 048
  4. ORENCIA [Suspect]
     Active Substance: ABATACEPT
     Dosage: UNK (MORE THAN 10 YEARS)
  5. PLAQUENIL [Suspect]
     Active Substance: HYDROXYCHLOROQUINE SULFATE
     Dosage: UNK (MORE THAN 10 YEARS)
  6. IMURAN [Suspect]
     Active Substance: AZATHIOPRINE
     Dosage: UNK (MORE THAN 10 YEARS)

REACTIONS (1)
  - Drug effect incomplete [Unknown]
